FAERS Safety Report 8775434 (Version 2)
Quarter: 2012Q4

REPORT INFORMATION
  Report Type: 
  Country: FR (occurrence: FR)
  Receive Date: 20120911
  Receipt Date: 20120914
  Transmission Date: 20130627
  Serious: Yes (Death, Other)
  Sender: FDA-Public Use
  Company Number: FR-ABBOTT-12P-056-0977317-00

PATIENT
  Age: 54 Year
  Sex: Female

DRUGS (10)
  1. HUMIRA [Suspect]
     Indication: RHEUMATOID ARTHRITIS
     Route: 058
     Dates: start: 200610, end: 201005
  2. ENBREL [Suspect]
     Indication: RHEUMATOID ARTHRITIS
     Route: 058
     Dates: start: 200512, end: 200610
  3. NOVATREX (METHOTREXATE) [Suspect]
     Route: 048
     Dates: start: 1999, end: 201108
  4. MABTHERA [Suspect]
     Indication: RHEUMATOID ARTHRITIS
     Dosage: 1 GRAM 2X/DAY CYCLIC
     Route: 042
     Dates: start: 20100505, end: 20100505
  5. MABTHERA [Suspect]
     Dosage: 1 GRAM 2X/DAY CYCLIC
     Route: 042
     Dates: start: 20100520, end: 20100520
  6. MABTHERA [Suspect]
     Dosage: 2 G CYCLIC
     Route: 042
     Dates: start: 201104, end: 201104
  7. MABTHERA [Suspect]
  8. ALDACTONE [Concomitant]
     Indication: PRODUCT USED FOR UNKNOWN INDICATION
  9. LEVOTHYROX [Concomitant]
     Indication: PRODUCT USED FOR UNKNOWN INDICATION
  10. VITAMIN D [Concomitant]
     Indication: PRODUCT USED FOR UNKNOWN INDICATION

REACTIONS (6)
  - Mixed hepatocellular cholangiocarcinoma [Fatal]
  - Abdominal pain [Unknown]
  - Metastases to lung [Unknown]
  - Metastases to liver [Unknown]
  - Malignant neoplasm progression [Unknown]
  - Metastases to lung [None]
